FAERS Safety Report 23559453 (Version 1)
Quarter: 2024Q1

REPORT INFORMATION
  Report Type: Spontaneous
  Country: GB (occurrence: GB)
  Receive Date: 20240223
  Receipt Date: 20240223
  Transmission Date: 20240410
  Serious: Yes (Other)
  Sender: FDA-Public Use
  Company Number: GB-BAXTER-2024BAX013301

PATIENT
  Age: 54 Year
  Sex: Male

DRUGS (3)
  1. CYCLOPHOSPHAMIDE [Suspect]
     Active Substance: CYCLOPHOSPHAMIDE
     Indication: Anti-glomerular basement membrane disease
     Dosage: 500 MG, ONLY 1 DOSE GIVEN
     Route: 042
  2. METHYLPREDNISOLONE [Concomitant]
     Active Substance: METHYLPREDNISOLONE
     Indication: Anti-glomerular basement membrane disease
     Dosage: PULSED (PMP) 1 G DAILY FOR 4 DAYS
     Route: 042
  3. HUMAN PLASMA [Concomitant]
     Active Substance: HUMAN PLASMA
     Indication: Anti-glomerular basement membrane disease
     Dosage: PLASMA EXCHANGE
     Route: 065

REACTIONS (3)
  - Pulmonary haemorrhage [Unknown]
  - Leukopenia [Unknown]
  - Thrombocytopenia [Unknown]
